FAERS Safety Report 24623593 (Version 1)
Quarter: 2024Q4

REPORT INFORMATION
  Report Type: Spontaneous
  Country: IN (occurrence: IN)
  Receive Date: 20241115
  Receipt Date: 20241115
  Transmission Date: 20250115
  Serious: Yes (Other)
  Sender: RANBAXY
  Company Number: IN-SUN PHARMACEUTICAL INDUSTRIES LTD.-2024R1-478310

PATIENT
  Age: 28 Year
  Sex: Female

DRUGS (1)
  1. DICLOFENAC DIETHYLAMINE\LINOLENIC ACID\MENTHOL\METHYL SALICYLATE [Suspect]
     Active Substance: DICLOFENAC DIETHYLAMINE\LINOLENIC ACID\MENTHOL\METHYL SALICYLATE
     Indication: Limb discomfort
     Dosage: UNK UNK, OD
     Route: 061
     Dates: start: 20241031, end: 20241031

REACTIONS (3)
  - Skin burning sensation [Unknown]
  - Application site erythema [Unknown]
  - Application site burn [Unknown]
